FAERS Safety Report 6043949-9 (Version None)
Quarter: 2009Q1

REPORT INFORMATION
  Report Type: 
  Country: None (occurrence: None)
  Receive Date: 20090120
  Receipt Date: 20090109
  Transmission Date: 20090719
  Serious: Yes (Other)
  Sender: FDA-Public Use
  Company Number: B0532362A

PATIENT
  Age: 58 Year
  Sex: Female

DRUGS (5)
  1. IODINE I 131 TOSITUMOMAB [Suspect]
     Indication: NON-HODGKIN'S LYMPHOMA
     Route: 042
     Dates: start: 20001101
  2. TOSITUMOMAB [Suspect]
     Indication: NON-HODGKIN'S LYMPHOMA
     Route: 042
     Dates: start: 20001101
  3. IODINE I 131 TOSITUMOMAB [Suspect]
     Route: 042
     Dates: start: 20001101
  4. TOSITUMOMAB [Suspect]
     Route: 042
     Dates: start: 20001101
  5. FLUDARABINE [Suspect]

REACTIONS (6)
  - DIZZINESS [None]
  - DYSPNOEA EXERTIONAL [None]
  - LETHARGY [None]
  - MYELODYSPLASTIC SYNDROME [None]
  - THROMBOCYTOPENIA [None]
  - URINARY TRACT INFECTION [None]
